FAERS Safety Report 8460039-6 (Version None)
Quarter: 2012Q2

REPORT INFORMATION
  Report Type: 
  Country: None (occurrence: None)
  Receive Date: 20120622
  Receipt Date: 20120618
  Transmission Date: 20120825
  Serious: Yes (Other)
  Sender: FDA-Public Use
  Company Number: PHHY2012DK052058

PATIENT
  Sex: Female
  Weight: 60 kg

DRUGS (3)
  1. VESICARE [Interacting]
     Indication: POLLAKIURIA
     Dosage: 5 MG, QD
     Route: 048
     Dates: start: 20091111, end: 20111215
  2. DESOGESTREL AND ETHINYL ESTRADIOL [Interacting]
     Indication: CONTRACEPTION
     Route: 048
     Dates: end: 20111215
  3. MASULIN [Suspect]
     Indication: POLLAKIURIA
     Route: 048
     Dates: start: 20091111, end: 20111215

REACTIONS (3)
  - PREGNANCY ON ORAL CONTRACEPTIVE [None]
  - DRUG INTERACTION [None]
  - MATERNAL EXPOSURE DURING PREGNANCY [None]
